FAERS Safety Report 11744998 (Version 12)
Quarter: 2018Q4

REPORT INFORMATION
  Report Type: Report from Study
  Country: GB (occurrence: GB)
  Receive Date: 20151117
  Receipt Date: 20181031
  Transmission Date: 20190204
  Serious: Yes (Other)
  Sender: FDA-Public Use
  Company Number: GB-ROCHE-1659887

PATIENT
  Sex: Male

DRUGS (2)
  1. ESBRIET [Suspect]
     Active Substance: PIRFENIDONE
     Indication: IDIOPATHIC PULMONARY FIBROSIS
     Route: 048
     Dates: start: 20140701
  2. ESBRIET [Suspect]
     Active Substance: PIRFENIDONE
     Route: 048

REACTIONS (16)
  - Bedridden [Unknown]
  - Nausea [Unknown]
  - Cough [Unknown]
  - Dysstasia [Unknown]
  - Fatigue [Unknown]
  - Gait disturbance [Unknown]
  - Depressed mood [Unknown]
  - Dizziness [Not Recovered/Not Resolved]
  - Dyspnoea [Unknown]
  - Productive cough [Unknown]
  - Nasopharyngitis [Unknown]
  - Product colour issue [Unknown]
  - Drug ineffective [Unknown]
  - Asthenia [Unknown]
  - Constipation [Unknown]
  - Lower respiratory tract infection [Not Recovered/Not Resolved]
